FAERS Safety Report 5527968-4 (Version None)
Quarter: 2007Q4

REPORT INFORMATION
  Report Type: 
  Country: None (occurrence: None)
  Receive Date: 20071109
  Receipt Date: 20070518
  Transmission Date: 20080405
  Serious: Yes (Other)
  Sender: FDA-Public Use
  Company Number: PHEH2005US11113

PATIENT
  Age: 64 Year
  Sex: Female
  Weight: 123.8 kg

DRUGS (19)
  1. ESTRADERM [Suspect]
     Indication: MENOPAUSAL SYMPTOMS
     Dosage: 0.05MG, TOPICAL
     Route: 061
     Dates: start: 19940101, end: 19950101
  2. PREMARIN [Suspect]
     Indication: MENOPAUSAL SYMPTOMS
     Dosage: 0.625MG QD DAYS1-25
     Dates: start: 19940101, end: 19990101
  3. PREMPRO [Suspect]
     Indication: MENOPAUSAL SYMPTOMS
     Dosage: 0.625MG/2.5MG QD
     Dates: start: 19970101, end: 20020901
  4. PROVERA [Suspect]
     Indication: MENOPAUSAL SYMPTOMS
     Dosage: 2.5MG DAYS 16-25
     Dates: start: 19940101, end: 19980101
  5. MEDROXYPROGESTERONE ACETATE [Suspect]
     Indication: MENOPAUSAL SYMPTOMS
     Dates: start: 19940101, end: 20020901
  6. COZAAR [Suspect]
     Indication: HYPERTENSION
     Dosage: 100MG QD
     Dates: start: 20000101, end: 20010101
  7. FENFLURAMINE W/PHENTERMINE (FENFLURAMINE, PHENTERMINE) [Concomitant]
  8. PRINIVIL [Concomitant]
  9. LISINOPRIL [Concomitant]
  10. TOPROL-XL [Concomitant]
  11. REDUX [Concomitant]
  12. LOVASTATIN [Concomitant]
  13. LIPITOR [Concomitant]
  14. HYZAAR [Concomitant]
  15. ALPRAZOLAM [Concomitant]
  16. MEPROBAMATE [Concomitant]
  17. HYDROCHLOROTHIAZIDE [Concomitant]
  18. FUROSEMIDE [Concomitant]
  19. VIOXX [Concomitant]

REACTIONS (12)
  - ANXIETY [None]
  - BREAST CANCER [None]
  - BREAST MASS [None]
  - CHEMOTHERAPY [None]
  - DEPRESSION [None]
  - HEART VALVE INCOMPETENCE [None]
  - HYPERGLYCAEMIA [None]
  - LYMPH NODE CANCER METASTATIC [None]
  - MALIGNANT BREAST LUMP REMOVAL [None]
  - MODIFIED RADICAL MASTECTOMY [None]
  - OSTEOARTHRITIS [None]
  - SINUS TACHYCARDIA [None]
